FAERS Safety Report 5955966-5 (Version None)
Quarter: 2008Q4

REPORT INFORMATION
  Report Type: 
  Country: None (occurrence: None)
  Receive Date: 20081112
  Receipt Date: 20081029
  Transmission Date: 20090506
  Serious: Yes (Hospitalization)
  Sender: FDA-Public Use
  Company Number: DSU-2008-01810

PATIENT
  Age: 78 Year
  Sex: Female
  Weight: 97.5234 kg

DRUGS (9)
  1. BENICAR [Suspect]
     Indication: HYPERTENSION
     Dosage: 20 MG (20 MG, QD), PER ORAL
     Route: 048
  2. CARVEDILOL (CARVEDILOL) (CARVEDILOL) [Concomitant]
  3. SIMVASTATIN [Concomitant]
  4. PLAVIX [Concomitant]
  5. AMLODIPINE [Concomitant]
  6. UNSPECIFIED THYROID PILL (THYROID HORMONES) [Concomitant]
  7. DARVOCET (PARACETAMOL, DEXTROPROPOXYPHENE HYDROCHLORIDE) (PARACETAMOL, [Concomitant]
  8. TYLENOL #3 (CODEINE PHOSPHATE, PARACETAMOL) ( CODEINE PHOSPHATE, PARAC [Concomitant]
  9. UNSPECIFIED STOOL SOFTENER (DOCUSATE SODIUM) (DOCUSATE SODIUM) [Concomitant]

REACTIONS (5)
  - CARDIAC PACEMAKER INSERTION [None]
  - DEVICE MALFUNCTION [None]
  - MEMORY IMPAIRMENT [None]
  - WALKING AID USER [None]
  - WHEELCHAIR USER [None]
